FAERS Safety Report 5669929-0 (Version None)
Quarter: 2008Q1

REPORT INFORMATION
  Report Type: 
  Country: None (occurrence: None)
  Receive Date: 20080317
  Receipt Date: 20080305
  Transmission Date: 20080703
  Serious: Yes (Other)
  Sender: FDA-Public Use
  Company Number: JP-PFIZER INC-2008021905

PATIENT
  Age: 84 Year
  Sex: Female

DRUGS (10)
  1. AMLODIN [Suspect]
     Indication: HYPERTENSION
     Route: 048
  2. RANITIDINE [Suspect]
     Indication: GASTRITIS
     Route: 048
  3. ALLORINE [Suspect]
     Indication: HYPERURICAEMIA
     Route: 048
     Dates: start: 20070921, end: 20071025
  4. CLARITIN [Suspect]
     Indication: DRUG ERUPTION
     Route: 048
     Dates: start: 20071002, end: 20071022
  5. CARBON TABLETS [Concomitant]
     Route: 048
  6. LABETALOL HCL [Concomitant]
     Route: 048
  7. NITRODERM [Concomitant]
     Route: 062
  8. FUROSEMIDE [Concomitant]
     Route: 048
  9. ASPIRIN [Concomitant]
     Route: 048
  10. POLARAMINE [Concomitant]
     Dates: start: 20071003, end: 20071012

REACTIONS (7)
  - DRUG ERUPTION [None]
  - EOSINOPHIL COUNT INCREASED [None]
  - GRANULOCYTE COUNT DECREASED [None]
  - LYMPHADENITIS [None]
  - LYMPHOCYTE STIMULATION TEST POSITIVE [None]
  - NEUTROPHIL COUNT DECREASED [None]
  - SKIN EXFOLIATION [None]
